FAERS Safety Report 9995177 (Version 2)
Quarter: 2014Q2

REPORT INFORMATION
  Report Type: Spontaneous
  Country: US (occurrence: US)
  Receive Date: 20140311
  Receipt Date: 20140528
  Transmission Date: 20141212
  Serious: Yes (Death, Hospitalization, Other)
  Sender: FDA-Public Use
  Company Number: US-BAXTER-2014BAX011042

PATIENT
  Sex: Female

DRUGS (4)
  1. DIANEAL LOW CALCIUM [Suspect]
     Indication: RENAL FAILURE CHRONIC
     Route: 033
     Dates: start: 20130911, end: 201404
  2. DIANEAL LOW CALCIUM [Suspect]
     Indication: PERITONEAL DIALYSIS
  3. DIANEAL LOW CALCIUM [Suspect]
     Indication: RENAL FAILURE CHRONIC
     Route: 033
     Dates: start: 20130911, end: 201404
  4. DIANEAL LOW CALCIUM [Suspect]
     Indication: PERITONEAL DIALYSIS

REACTIONS (12)
  - Cellulitis [Fatal]
  - Adverse drug reaction [Fatal]
  - Epigastric discomfort [Fatal]
  - Diarrhoea [Fatal]
  - Dehydration [Fatal]
  - Asthenia [Fatal]
  - Therapy cessation [Fatal]
  - Blood albumin decreased [Unknown]
  - Atrial fibrillation [Unknown]
  - Hypertension [Unknown]
  - Fluid retention [Not Recovered/Not Resolved]
  - Abdominal pain [Unknown]
